FAERS Safety Report 17073840 (Version 1)
Quarter: 2019Q4

REPORT INFORMATION
  Report Type: Spontaneous
  Country: US (occurrence: US)
  Receive Date: 20191126
  Receipt Date: 20191126
  Transmission Date: 20200122
  Serious: No
  Sender: FDA-Public Use
  Company Number: US-ALVOGEN-2019-ALVOGEN-101257

PATIENT
  Age: 67 Year
  Sex: Female

DRUGS (2)
  1. ESTRADIOL. [Suspect]
     Active Substance: ESTRADIOL
     Indication: PRODUCT USED FOR UNKNOWN INDICATION
     Dates: start: 20190805
  2. LISINOPRIL. [Suspect]
     Active Substance: LISINOPRIL
     Indication: PRODUCT USED FOR UNKNOWN INDICATION

REACTIONS (7)
  - Eye pruritus [Unknown]
  - Crepitations [Unknown]
  - Ear discomfort [Unknown]
  - Pruritus [Unknown]
  - Dizziness [Unknown]
  - Lip swelling [Unknown]
  - Arthritis [Unknown]

NARRATIVE: CASE EVENT DATE: 201905
